FAERS Safety Report 22005609 (Version 1)
Quarter: 2023Q1

REPORT INFORMATION
  Report Type: Spontaneous
  Country: US (occurrence: US)
  Receive Date: 20230217
  Receipt Date: 20230217
  Transmission Date: 20230417
  Serious: Yes (Other)
  Sender: FDA-Public Use
  Company Number: US-PFIZER INC-202300066810

PATIENT
  Age: 63 Year
  Sex: Female

DRUGS (6)
  1. XELJANZ [Suspect]
     Active Substance: TOFACITINIB CITRATE
     Dosage: 5 MG, 2X/DAY
     Route: 048
     Dates: start: 2019
  2. FISH OIL [Concomitant]
     Active Substance: FISH OIL
     Dosage: UNK (FISH OIL 300-100)
  3. MAGNESIUM [Concomitant]
     Active Substance: MAGNESIUM
     Dosage: UNK
  4. SHINGRIX [Concomitant]
     Active Substance: RECOMBINANT VARICELLA ZOSTER VIRUS (VZV) GLYCOPROTEIN E
     Dosage: UNK
  5. VITAMIN D3 [Concomitant]
     Active Substance: CHOLECALCIFEROL
     Dosage: UNK
  6. BNT162B2;BNT162B2 OMI BA.4-5 [Concomitant]
     Indication: Immunisation
     Dosage: DOSE UNKNOWN, SINGLE (PFIZER COVID BIVAL (12 30 MCG))

REACTIONS (4)
  - Squamous cell carcinoma [Recovered/Resolved]
  - Crohn^s disease [Not Recovered/Not Resolved]
  - COVID-19 [Recovered/Resolved]
  - Nausea [Unknown]

NARRATIVE: CASE EVENT DATE: 20220501
